FAERS Safety Report 14374759 (Version 3)
Quarter: 2021Q3

REPORT INFORMATION
  Report Type: Spontaneous
  Country: US (occurrence: US)
  Receive Date: 20180111
  Receipt Date: 20210709
  Transmission Date: 20211014
  Serious: Yes (Disabling)
  Sender: FDA-Public Use
  Company Number: US-TEVA-2018-US-844160

PATIENT
  Age: 54 Year
  Sex: Female
  Weight: 59.47 kg

DRUGS (4)
  1. DOCETAXEL. [Suspect]
     Active Substance: DOCETAXEL
     Indication: INVASIVE DUCTAL BREAST CARCINOMA
     Dosage: DOSAGE DETAILS: 75MG/M2, FREQUENCY: EVERY THREE WEEKS
     Route: 065
     Dates: start: 20131111, end: 20131227
  2. CYTOXAN [Concomitant]
     Active Substance: CYCLOPHOSPHAMIDE
     Indication: INVASIVE DUCTAL BREAST CARCINOMA
     Dosage: DOSAGE DETAILS: 600MG/M2
     Route: 065
  3. TAXOTERE [Suspect]
     Active Substance: DOCETAXEL
     Indication: INVASIVE DUCTAL BREAST CARCINOMA
     Dosage: DOSAGE DETAILS: 75MG/M2 EVERY THREE WEEKS
     Route: 065
     Dates: start: 20131111, end: 20131227
  4. TRIAMETERENE [Concomitant]
     Indication: INVASIVE DUCTAL BREAST CARCINOMA
     Dosage: THERAPY STATUS: ONGOING
     Route: 065
     Dates: start: 2000

REACTIONS (4)
  - Alopecia areata [Not Recovered/Not Resolved]
  - Madarosis [Not Recovered/Not Resolved]
  - Hair colour changes [Not Recovered/Not Resolved]
  - Hair texture abnormal [Not Recovered/Not Resolved]

NARRATIVE: CASE EVENT DATE: 201409
